FAERS Safety Report 9226090 (Version 1)
Quarter: 2013Q2

REPORT INFORMATION
  Report Type: Spontaneous
  Country: US (occurrence: US)
  Receive Date: 20130411
  Receipt Date: 20130411
  Transmission Date: 20140414
  Serious: Yes (Hospitalization)
  Sender: FDA-Public Use
  Company Number: US-ASTRAZENECA-2013SE22144

PATIENT
  Sex: Female

DRUGS (12)
  1. NEXIUM [Suspect]
     Indication: GASTROOESOPHAGEAL REFLUX DISEASE
     Route: 048
     Dates: start: 201301, end: 20130328
  2. NEXIUM [Suspect]
     Indication: VOMITING
     Route: 048
     Dates: start: 201301, end: 20130328
  3. NEXIUM [Suspect]
     Indication: GASTROOESOPHAGEAL REFLUX DISEASE
     Route: 048
     Dates: start: 20130401
  4. NEXIUM [Suspect]
     Indication: VOMITING
     Route: 048
     Dates: start: 20130401
  5. MORPHINE [Suspect]
     Indication: PAIN
     Route: 065
  6. ATIVAN [Suspect]
     Route: 065
  7. MULITPLE PSYCH MEDS [Concomitant]
     Indication: BIPOLAR DISORDER
  8. BLOOD PRESSURE MEDICATION [Concomitant]
     Indication: HYPERTENSION
  9. SYNTHROID [Concomitant]
     Indication: HYPOTHYROIDISM
  10. LASIX [Concomitant]
  11. NAPROXEN [Concomitant]
     Indication: ARTHRITIS
  12. DILAUDID [Concomitant]
     Indication: PAIN
     Route: 048

REACTIONS (10)
  - Mania [Unknown]
  - Lymphoedema [Unknown]
  - Pain in extremity [Unknown]
  - Contusion [Unknown]
  - Chronic obstructive pulmonary disease [Unknown]
  - Osteoarthritis [Unknown]
  - Insomnia [Unknown]
  - Abdominal discomfort [Recovered/Resolved]
  - Constipation [Recovered/Resolved]
  - Injection site bruising [Unknown]
